FAERS Safety Report 20037478 (Version 2)
Quarter: 2022Q1

REPORT INFORMATION
  Report Type: Spontaneous
  Country: US (occurrence: US)
  Receive Date: 20211105
  Receipt Date: 20220222
  Transmission Date: 20220424
  Serious: Yes (Hospitalization, Other)
  Sender: FDA-Public Use
  Company Number: US-BRISTOL-MYERS SQUIBB COMPANY-BMS-2021-117039

PATIENT
  Age: 75 Year
  Sex: Female

DRUGS (1)
  1. ELIQUIS [Suspect]
     Active Substance: APIXABAN
     Indication: Intermittent claudication
     Dosage: 5 MILLIGRAM, BID
     Route: 048
     Dates: start: 20210917

REACTIONS (4)
  - Dehydration [Unknown]
  - Urinary tract infection [Unknown]
  - Pneumonia [Unknown]
  - Intentional product use issue [Unknown]
